FAERS Safety Report 4467882-9 (Version None)
Quarter: 2004Q4

REPORT INFORMATION
  Report Type: 
  Country: None (occurrence: None)
  Receive Date: 20041004
  Receipt Date: 20041004
  Transmission Date: 20050328
  Serious: Yes (Death)
  Sender: FDA-Public Use
  Company Number: None

PATIENT
  Sex: Female

DRUGS (5)
  1. ALTEPLASE  50 MG [Suspect]
     Indication: EMBOLIC STROKE
     Dates: start: 20040915, end: 20040915
  2. CARDIZEM CD [Concomitant]
  3. ALDACTAZIDE [Concomitant]
  4. FLOVENT [Concomitant]
  5. SINGULAIR [Concomitant]

REACTIONS (1)
  - CEREBRAL HAEMORRHAGE [None]
